FAERS Safety Report 7361801-3 (Version None)
Quarter: 2011Q1

REPORT INFORMATION
  Report Type: 
  Country: None (occurrence: None)
  Receive Date: 20110318
  Receipt Date: 20110307
  Transmission Date: 20110831
  Serious: Yes (Hospitalization, Other)
  Sender: FDA-Public Use
  Company Number: US-CELGENEUS-163-20785-11012451

PATIENT
  Sex: Female
  Weight: 48.124 kg

DRUGS (43)
  1. IPRATROPIUM BROMIDE AND ALBUTEROL SULFATE [Concomitant]
     Dosage: 0.5-2.5MG/3ML
     Route: 055
  2. LEVOTHYROXINE SODIUM [Concomitant]
     Dosage: .125 MILLIGRAM
     Route: 048
  3. DULCOLAX [Concomitant]
     Dosage: 10 MILLIGRAM
     Route: 054
  4. CYPROHEPTADINE HCL [Concomitant]
     Indication: PRURITUS
     Dosage: 4 MILLIGRAM
     Route: 065
  5. IBUPROFEN [Concomitant]
     Dosage: 200 MILLIGRAM
     Route: 065
  6. POTASSIUM [Concomitant]
     Route: 065
  7. TRANDOLAPRIL [Concomitant]
     Route: 065
  8. BICARBONATE [Concomitant]
     Indication: ACIDOSIS
     Route: 065
     Dates: start: 20101001
  9. OXYGEN [Concomitant]
     Route: 055
  10. ACETAMINOPHEN [Concomitant]
     Dosage: 650 MILLIGRAM
     Route: 048
  11. ZOLOFT [Concomitant]
     Dosage: 50 MILLIGRAM
     Route: 048
  12. ZOLEDRONIC ACID [Concomitant]
     Indication: OSTEOARTHRITIS
     Route: 065
  13. REQUIP [Concomitant]
     Route: 065
     Dates: start: 20101001
  14. REMERON [Concomitant]
  15. THALOMID [Suspect]
     Indication: MYELOPROLIFERATIVE DISORDER
     Dosage: 50 MILLIGRAM
     Route: 048
     Dates: start: 20100805, end: 20101020
  16. ASPIRIN [Concomitant]
     Dosage: 325 MICROGRAM
     Route: 048
  17. PREDNISONE [Concomitant]
     Route: 048
  18. COLACE [Concomitant]
     Dosage: 100 MILLIGRAM
     Route: 048
  19. FISH OIL [Concomitant]
     Dosage: 1000 MILLIGRAM
     Route: 048
  20. NORCO [Concomitant]
     Dosage: 5-325MG
     Route: 048
  21. LEVOTHYROXINE SODIUM [Concomitant]
     Indication: HYPOTHYROIDISM
     Dosage: 150 MICROGRAM
     Route: 048
  22. MILK OF MAGNESIUM [Concomitant]
     Indication: CONSTIPATION
     Dosage: 30 MILLILITER
     Route: 048
  23. ROBITUSSIN DM [Concomitant]
     Dosage: 100-10MG/5ML
     Route: 048
  24. ASCORBIC ACID [Concomitant]
     Route: 065
  25. SPIRONOLACTONE [Concomitant]
     Route: 065
  26. CARVEDILOL [Concomitant]
     Dosage: 6.25 MILLIGRAM
     Route: 048
  27. ASPIRIN [Concomitant]
     Dosage: 81 MICROGRAM
     Route: 048
  28. PRILOSEC [Concomitant]
     Dosage: 20 MILLIGRAM
     Route: 048
  29. CITRACAL+D [Concomitant]
     Dosage: 315/250MG
     Route: 048
  30. CITRACAL+D [Concomitant]
     Dosage: 400 MILLIGRAM
     Route: 048
  31. PREDNISONE [Concomitant]
     Dosage: 15 MILLIGRAM
     Route: 048
     Dates: start: 20100709
  32. COLACE [Concomitant]
     Route: 048
  33. FIBER [Concomitant]
     Dosage: 625 MILLIGRAM
     Route: 048
  34. LASIX [Concomitant]
     Route: 065
  35. VITAMIN D [Concomitant]
     Dosage: 1000 UNIT
     Route: 048
  36. BIOTIN WITH B VITAMINS [Concomitant]
     Route: 065
  37. PROCHLORPERAZINE [Concomitant]
     Indication: NAUSEA
     Dosage: 10 MILLIGRAM
     Route: 048
  38. CALMOSEPTINE [Concomitant]
     Indication: MALNUTRITION
     Route: 065
  39. MULTI-VITAMINS [Concomitant]
     Dosage: 1 DOSAGE FORMS
     Route: 048
  40. ACETAMINOPHEN [Concomitant]
     Route: 065
  41. VITAMIN B [Concomitant]
     Dosage: 1000 MILLIEQUIVALENTS
     Route: 065
  42. REMERON [Concomitant]
     Indication: DEPRESSION
     Route: 065
     Dates: start: 20101001
  43. PROTONIX [Concomitant]
     Route: 065

REACTIONS (12)
  - ABDOMINAL DISTENSION [None]
  - ASTHENIA [None]
  - DEHYDRATION [None]
  - FAILURE TO THRIVE [None]
  - ELECTROLYTE IMBALANCE [None]
  - PNEUMONIA [None]
  - NAUSEA [None]
  - CANDIDIASIS [None]
  - DECREASED APPETITE [None]
  - VOMITING [None]
  - URINARY TRACT INFECTION [None]
  - RENAL FAILURE [None]
